FAERS Safety Report 6176766-X (Version None)
Quarter: 2009Q2

REPORT INFORMATION
  Report Type: 
  Country: None (occurrence: None)
  Receive Date: 20090501
  Receipt Date: 20080630
  Transmission Date: 20091009
  Serious: Yes (Hospitalization)
  Sender: FDA-Public Use
  Company Number: US-ALEXION-A200800048

PATIENT

DRUGS (13)
  1. SOLIRIS [Suspect]
     Indication: PAROXYSMAL NOCTURNAL HAEMOGLOBINURIA
     Dosage: 600 MG, SINGLE
     Route: 042
     Dates: start: 20080201, end: 20080201
  2. SOLIRIS [Suspect]
     Dosage: 600 MG, SINGLE
     Route: 042
     Dates: start: 20080208, end: 20080208
  3. SOLIRIS [Suspect]
     Dosage: 600 MG, SINGLE
     Route: 042
     Dates: start: 20080215, end: 20080215
  4. SOLIRIS [Suspect]
     Dosage: 600 MG, SINGLE
     Route: 042
     Dates: start: 20080222, end: 20080222
  5. SOLIRIS [Suspect]
     Dosage: 900 MG, SINGLE
     Route: 042
     Dates: start: 20080229, end: 20080229
  6. SOLIRIS [Suspect]
     Dosage: 900 MG, SINGLE
     Route: 042
     Dates: start: 20080314, end: 20080314
  7. SOLIRIS [Suspect]
     Dosage: 900 MG, SINGLE
     Route: 042
     Dates: start: 20080331, end: 20080331
  8. SOLIRIS [Suspect]
     Dosage: 900 MG, SINGLE
     Route: 042
     Dates: start: 20080411, end: 20080411
  9. SOLIRIS [Suspect]
     Dosage: 900 MG, SINGLE
     Route: 042
     Dates: start: 20080425, end: 20080425
  10. SOLIRIS [Suspect]
     Dosage: 900 MG, SINGLE
     Route: 042
     Dates: start: 20080509, end: 20080509
  11. SOLIRIS [Suspect]
     Dosage: 900 MG, SINGLE
     Route: 042
     Dates: start: 20080615, end: 20080615
  12. MULTIVITAMIN /00831701/ [Concomitant]
     Dosage: 2 TABS, QD
     Route: 048
  13. TYLENOL (CAPLET) [Concomitant]
     Dosage: UNK, PRN
     Route: 048

REACTIONS (10)
  - ABDOMINAL PAIN [None]
  - BACK PAIN [None]
  - BACTERAEMIA [None]
  - DIZZINESS [None]
  - ESCHERICHIA INFECTION [None]
  - HEADACHE [None]
  - MUSCULOSKELETAL STIFFNESS [None]
  - NEUTROPHIL COUNT DECREASED [None]
  - OEDEMA PERIPHERAL [None]
  - URINARY TRACT INFECTION [None]
